FAERS Safety Report 15662012 (Version 1)
Quarter: 2018Q4

REPORT INFORMATION
  Report Type: Spontaneous
  Country: CA (occurrence: CA)
  Receive Date: 20181127
  Receipt Date: 20181127
  Transmission Date: 20190205
  Serious: Yes (Death, Hospitalization)
  Sender: FDA-Public Use
  Company Number: PHHY2018CA166167

PATIENT
  Age: 31 Year
  Sex: Male

DRUGS (1)
  1. PREDNISONE. [Suspect]
     Active Substance: PREDNISONE
     Indication: ARTHRITIS
     Dosage: 50 MG, QD
     Route: 065

REACTIONS (8)
  - Dyspnoea [Fatal]
  - Multiple organ dysfunction syndrome [Fatal]
  - Blastomycosis [Fatal]
  - Respiratory failure [Fatal]
  - Papule [Fatal]
  - Cough [Fatal]
  - Pyrexia [Fatal]
  - Erythema [Fatal]
